FAERS Safety Report 6593637-5 (Version None)
Quarter: 2010Q1

REPORT INFORMATION
  Report Type: 
  Country: None (occurrence: None)
  Receive Date: 20100222
  Receipt Date: 20090924
  Transmission Date: 20100710
  Serious: No
  Sender: FDA-Public Use
  Company Number: US-BRISTOL-MYERS SQUIBB COMPANY-14791206

PATIENT
  Age: 63 Year
  Sex: Female
  Weight: 95 kg

DRUGS (17)
  1. ORENCIA [Suspect]
     Indication: JUVENILE ARTHRITIS
  2. METHOTREXATE [Concomitant]
  3. MACRODANTIN [Concomitant]
  4. ACTONEL [Concomitant]
  5. AVACOR [Concomitant]
  6. ASPIRIN [Concomitant]
  7. CALCIUM + VITAMIN D [Concomitant]
  8. COREG [Concomitant]
  9. CYMBALTA [Concomitant]
  10. DEPLIN [Concomitant]
  11. FOLIC ACID [Concomitant]
  12. METFORMIN [Concomitant]
  13. OXYBUTYNIN [Concomitant]
  14. KLONOPIN [Concomitant]
  15. TRAZODONE HCL [Concomitant]
  16. NEXIUM [Concomitant]
  17. PROBIOTICA [Concomitant]

REACTIONS (3)
  - COUGH [None]
  - ORAL CANDIDIASIS [None]
  - URINARY TRACT INFECTION [None]
